FAERS Safety Report 4938610-5 (Version None)
Quarter: 2006Q1

REPORT INFORMATION
  Report Type: 
  Country: None (occurrence: None)
  Receive Date: 20060306
  Receipt Date: 20060222
  Transmission Date: 20060701
  Serious: Yes (Hospitalization)
  Sender: FDA-Public Use
  Company Number: CIP06000387

PATIENT
  Sex: Male

DRUGS (1)
  1. ASACOL [Suspect]
     Indication: COLITIS
     Dosage: 800 MG, 3 TIMES DAILY
     Route: 048
     Dates: start: 20060201

REACTIONS (2)
  - ENTEROCOLITIS INFECTIOUS [None]
  - MEDICATION RESIDUE [None]
